FAERS Safety Report 17451339 (Version 1)
Quarter: 2020Q1

REPORT INFORMATION
  Report Type: Spontaneous
  Country: US (occurrence: US)
  Receive Date: 20200223
  Receipt Date: 20200223
  Transmission Date: 20200409
  Serious: Yes (Other)
  Sender: FDA-Public Use
  Company Number: None

PATIENT
  Age: 34 Year
  Sex: Female
  Weight: 64.35 kg

DRUGS (10)
  1. SENNALAX [Concomitant]
  2. CALCIUM [Concomitant]
     Active Substance: CALCIUM
  3. PERCOCET [Concomitant]
     Active Substance: ACETAMINOPHEN\OXYCODONE HYDROCHLORIDE
  4. TAMOXIFEN [Concomitant]
     Active Substance: TAMOXIFEN
  5. NAPROXEN. [Concomitant]
     Active Substance: NAPROXEN
  6. DOCUSATE [Concomitant]
     Active Substance: DOCUSATE
  7. IBRANCE [Suspect]
     Active Substance: PALBOCICLIB
     Indication: BREAST CANCER
     Route: 048
     Dates: start: 20190302, end: 20200222
  8. LACTULOSE. [Concomitant]
     Active Substance: LACTULOSE
  9. BISACODYL. [Concomitant]
     Active Substance: BISACODYL
  10. OXYCONTIN [Concomitant]
     Active Substance: OXYCODONE HYDROCHLORIDE

REACTIONS (1)
  - Disease progression [None]

NARRATIVE: CASE EVENT DATE: 20200222
